FAERS Safety Report 25050777 (Version 2)
Quarter: 2025Q3

REPORT INFORMATION
  Report Type: Report from Study
  Country: US (occurrence: US)
  Receive Date: 20250307
  Receipt Date: 20250809
  Transmission Date: 20251021
  Serious: Yes (Other)
  Sender: ALEXION PHARMACEUTICALS
  Company Number: US-AstraZeneca-CH-00820970A

PATIENT
  Sex: Female

DRUGS (1)
  1. SOLIRIS [Suspect]
     Active Substance: ECULIZUMAB
     Indication: Paroxysmal nocturnal haemoglobinuria

REACTIONS (7)
  - Atrial fibrillation [Recovering/Resolving]
  - Pneumonia [Recovered/Resolved]
  - Carpal tunnel syndrome [Recovered/Resolved]
  - Cubital tunnel syndrome [Recovered/Resolved]
  - Diarrhoea [Recovering/Resolving]
  - Full blood count abnormal [Unknown]
  - Dehydration [Recovering/Resolving]

NARRATIVE: CASE EVENT DATE: 20241201
